FAERS Safety Report 8612505-8 (Version None)
Quarter: 2012Q3

REPORT INFORMATION
  Report Type: 
  Country: None (occurrence: None)
  Receive Date: 20120822
  Receipt Date: 20120820
  Transmission Date: 20120928
  Serious: Yes (Life-Threatening, Hospitalization)
  Sender: FDA-Public Use
  Company Number: JP-ABBOTT-12P-087-0963775-00

PATIENT
  Age: 67 Year
  Sex: Male

DRUGS (7)
  1. ANTIIARRHYTHMIA [Concomitant]
     Indication: PRODUCT USED FOR UNKNOWN INDICATION
  2. NSAID'S [Concomitant]
     Indication: PRODUCT USED FOR UNKNOWN INDICATION
  3. PREDNISONE TAB [Concomitant]
     Indication: PRODUCT USED FOR UNKNOWN INDICATION
  4. HYPOTENSIVE [Concomitant]
     Indication: PRODUCT USED FOR UNKNOWN INDICATION
  5. PPI [Concomitant]
     Indication: PRODUCT USED FOR UNKNOWN INDICATION
  6. PL GRAN. [Suspect]
  7. CLARITHROMYCIN [Suspect]
     Indication: PRODUCT USED FOR UNKNOWN INDICATION

REACTIONS (4)
  - PANCYTOPENIA [None]
  - SEPTIC SHOCK [None]
  - AGRANULOCYTOSIS [None]
  - LARGE INTESTINE PERFORATION [None]
